FAERS Safety Report 5993307-8 (Version None)
Quarter: 2008Q4

REPORT INFORMATION
  Report Type: 
  Country: None (occurrence: None)
  Receive Date: 20081210
  Receipt Date: 20081210
  Transmission Date: 20090506
  Serious: Yes (Other)
  Sender: FDA-Public Use
  Company Number: None

PATIENT
  Age: 60 Year
  Sex: Male
  Weight: 87.9978 kg

DRUGS (4)
  1. DICLOFENAC SODIUM [Suspect]
     Indication: PAIN IN JAW
     Dosage: 1 TABLET ONCE PO
     Route: 048
     Dates: start: 20081207, end: 20081208
  2. DICLOFENAC SODIUM [Suspect]
     Indication: TOOTHACHE
     Dosage: 1 TABLET ONCE PO
     Route: 048
     Dates: start: 20081207, end: 20081208
  3. CLINDAMYCIN HCL [Suspect]
     Indication: PAIN IN JAW
     Dosage: 1 CAPSULE ONCE PO
     Route: 048
     Dates: start: 20081207, end: 20081208
  4. CLINDAMYCIN HCL [Suspect]
     Indication: TOOTHACHE
     Dosage: 1 CAPSULE ONCE PO
     Route: 048
     Dates: start: 20081207, end: 20081208

REACTIONS (4)
  - ABDOMINAL PAIN UPPER [None]
  - MUSCLE SPASMS [None]
  - PAIN [None]
  - SLEEP DISORDER DUE TO GENERAL MEDICAL CONDITION, INSOMNIA TYPE [None]
